FAERS Safety Report 9406476 (Version 1)
Quarter: 2013Q3

REPORT INFORMATION
  Report Type: Spontaneous
  Country: FR (occurrence: FR)
  Receive Date: 20130718
  Receipt Date: 20130718
  Transmission Date: 20140515
  Serious: Yes (Other)
  Sender: FDA-Public Use
  Company Number: FR-ROCHE-1249774

PATIENT
  Age: 69 Year
  Sex: Male

DRUGS (10)
  1. ROCEPHINE [Suspect]
     Indication: PRODUCT USED FOR UNKNOWN INDICATION
     Route: 041
     Dates: start: 20130518, end: 20130527
  2. TYGACIL [Suspect]
     Indication: SKIN BACTERIAL INFECTION
     Dosage: IN THE MORNING AND IN THE EVENING
     Route: 041
     Dates: start: 20130331, end: 20130603
  3. TOBRAMYCIN SULFATE [Suspect]
     Indication: SKIN BACTERIAL INFECTION
     Route: 041
     Dates: start: 20130331, end: 20130531
  4. CIFLOX (FRANCE) [Suspect]
     Indication: PRODUCT USED FOR UNKNOWN INDICATION
     Route: 041
     Dates: start: 20130518, end: 20130523
  5. PREVISCAN (FRANCE) [Concomitant]
  6. FLECAINE [Concomitant]
  7. LASILIX [Concomitant]
  8. LYRICA [Concomitant]
  9. MOTILIUM (FRANCE) [Concomitant]
  10. CONTRAMAL [Concomitant]

REACTIONS (3)
  - Thrombocytopenia [Recovered/Resolved]
  - Anaemia [Recovered/Resolved]
  - Cholestasis [Recovered/Resolved]
